FAERS Safety Report 8772837 (Version 5)
Quarter: 2012Q4

REPORT INFORMATION
  Report Type: 
  Country: AU (occurrence: AU)
  Receive Date: 20120907
  Receipt Date: 20121114
  Transmission Date: 20130627
  Serious: Yes (Other)
  Sender: FDA-Public Use
  Company Number: AU-PFIZER INC-2012193845

PATIENT
  Age: 37 Year
  Sex: Female
  Weight: 55 kg

DRUGS (11)
  1. REVATIO [Suspect]
     Indication: IDIOPATHIC (IPAH)
     Dosage: 20 mg, 3x/day
     Route: 048
     Dates: start: 2002
  2. REVATIO [Suspect]
     Dosage: 40 mg, 3x/day
     Route: 048
  3. AMBRISENTAN [Suspect]
     Indication: PULMONARY ARTERIAL HYPERTENSION
     Dosage: 10 mg, in the morning
     Dates: start: 20070802
  4. WARFARIN [Concomitant]
     Indication: PULMONARY ARTERIAL HYPERTENSION
     Dosage: variable dose
     Dates: start: 19960902
  5. SPIRONOLACTONE [Concomitant]
     Indication: FLUID RETENTION
     Dosage: 100 mg, UNK
     Dates: start: 20071013
  6. MORPHINE [Concomitant]
     Indication: PAIN
     Dosage: 12.5 ug, every 3rd daily
  7. OMEPRAZOLE [Concomitant]
     Indication: GASTROESOPHAGEAL REFLUX
     Dosage: 20 mg, 2x/day
  8. POTASSIUM CHLORIDE [Concomitant]
     Indication: POTASSIUM REPLACEMENT
     Dosage: 600 mg, 2x/day
     Dates: start: 20070210
  9. FRUSEMIDE [Concomitant]
     Dosage: 80 mg, 2x/day
     Dates: start: 20070502
  10. VENLAFAXINE HYDROCHLORIDE [Concomitant]
     Dosage: 225 mg, 1x/day
     Dates: start: 20070305
  11. OXAZEPAM [Concomitant]
     Dosage: 30 mg, nocte
     Dates: start: 20120116

REACTIONS (4)
  - Pulmonary hypertension [Recovering/Resolving]
  - Lung disorder [Unknown]
  - Off label use [Recovered/Resolved]
  - Drug ineffective [Unknown]
